FAERS Safety Report 20497367 (Version 4)
Quarter: 2022Q2

REPORT INFORMATION
  Report Type: Report from Study
  Country: GB (occurrence: GB)
  Receive Date: 20220221
  Receipt Date: 20220621
  Transmission Date: 20220721
  Serious: Yes (Hospitalization)
  Sender: FDA-Public Use
  Company Number: GB-BRISTOL-MYERS SQUIBB COMPANY-BMS-2022-023418

PATIENT
  Sex: Female
  Weight: 58.2 kg

DRUGS (12)
  1. NIVOLUMAB [Suspect]
     Active Substance: NIVOLUMAB
     Indication: Ovarian cancer
     Dosage: 240 MILLIGRAM, 5 CYCLES (CUMULATIVE DOSE: 3360 MG)
     Route: 042
     Dates: start: 20210618, end: 20220114
  2. NIVOLUMAB [Suspect]
     Active Substance: NIVOLUMAB
     Indication: Fallopian tube cancer
  3. NIVOLUMAB [Suspect]
     Active Substance: NIVOLUMAB
     Indication: Malignant peritoneal neoplasm
  4. IPILIMUMAB [Suspect]
     Active Substance: IPILIMUMAB
     Indication: Ovarian cancer
     Dosage: 65 MG  4 CYCLES (CUMULATIVE DOSE: 260 MG)
     Route: 042
     Dates: start: 20210618, end: 20211105
  5. IPILIMUMAB [Suspect]
     Active Substance: IPILIMUMAB
     Indication: Fallopian tube cancer
  6. IPILIMUMAB [Suspect]
     Active Substance: IPILIMUMAB
     Indication: Malignant peritoneal neoplasm
  7. RUCAPARIB [Suspect]
     Active Substance: RUCAPARIB
     Indication: Ovarian cancer
     Dosage: 400 MILLIGRAM, 5 CYCLES (CUMULATIVE DOSE: 20000 MG)
     Route: 048
     Dates: start: 20210618, end: 20220126
  8. RUCAPARIB [Suspect]
     Active Substance: RUCAPARIB
     Indication: Fallopian tube cancer
  9. RUCAPARIB [Suspect]
     Active Substance: RUCAPARIB
     Indication: Malignant peritoneal neoplasm
  10. LORAZEPAM [Concomitant]
     Active Substance: LORAZEPAM
     Indication: Insomnia
     Dosage: 1 MILLIGRAM
     Route: 048
     Dates: start: 20211006
  11. MYCOPHENOLIC ACID [Concomitant]
     Active Substance: MYCOPHENOLIC ACID
     Indication: Adverse event
     Dosage: 500 MILLIGRAM
     Route: 048
     Dates: start: 20220131
  12. SERTRALINE [Concomitant]
     Active Substance: SERTRALINE HYDROCHLORIDE
     Indication: Depression
     Dosage: 50 MILLIGRAM
     Route: 048
     Dates: start: 20220131

REACTIONS (1)
  - Psychotic disorder [Recovering/Resolving]

NARRATIVE: CASE EVENT DATE: 20220128
